FAERS Safety Report 9507264 (Version 1)
Quarter: 2013Q1

REPORT INFORMATION
  Report Type: Spontaneous
  Country: US (occurrence: None)
  Receive Date: 20130305
  Receipt Date: 20130305
  Transmission Date: 20140127
  Serious: Yes (Hospitalization)
  Sender: FDA-Public Use
  Company Number: 163-21880-12050067

PATIENT
  Age: 84 Year
  Sex: Female
  Weight: 78.02 kg

DRUGS (13)
  1. REVLIMID (LENALIDOMIDE) (25 MILLIGRAM, CAPSULES) [Suspect]
     Indication: PLASMA CELL MYELOMA
     Dosage: 25 MG, DAILY X 21 DAYS 7 DAYS OFF, PO
     Route: 048
     Dates: start: 20120202
  2. ATENOLOL (ATENOLOL) (UNKNOWN) [Concomitant]
  3. MVI (MVI) (UNKNOWN) [Concomitant]
  4. AMLODIPINE (AMLODIPINE) (UNKNOWN) [Concomitant]
  5. ASA (ACETYLSALICYLIC ACID) (UNKNOWN) [Concomitant]
  6. SYNTHROID (LEVOTHYROXINE SODIUM) (UNKNOWN) [Concomitant]
  7. LOPID (GEMFIBROZIL) (UNKNOWN) [Concomitant]
  8. FIBERCOM (POLYCARBOPHIL CALCIUM) (UNKNOWN) [Concomitant]
  9. ACYCLOVIR (ACICLOVIR) (UNKNOWN) [Concomitant]
  10. DEXAMETHASONE (DEXAMETHASONE) (UNKNOWN) [Concomitant]
  11. CALCIUM + VITAMIN D (LEXOVIT CA) (UNKNOWN) [Concomitant]
  12. VALACICLOVIR (VALACICLOVIR) (UNKNOWN) [Concomitant]
  13. UNK MED FOR GOUT (UNKNOWN) [Concomitant]

REACTIONS (3)
  - Neutropenia [None]
  - Herpes zoster [None]
  - Infection [None]
